FAERS Safety Report 20219812 (Version 1)
Quarter: 2021Q4

REPORT INFORMATION
  Report Type: Spontaneous
  Country: US (occurrence: US)
  Receive Date: 20211222
  Receipt Date: 20211222
  Transmission Date: 20220303
  Serious: No
  Sender: FDA-Public Use
  Company Number: US-UPSHER-SMITH LABORATORIES, LLC-2021USL00446

PATIENT
  Age: 76 Year
  Sex: Female

DRUGS (3)
  1. KLOR-CON M [Suspect]
     Active Substance: POTASSIUM CHLORIDE
     Route: 048
  2. UNSPECIFIED INGREDIENT [Suspect]
     Active Substance: UNSPECIFIED INGREDIENT
  3. UNSPECIFIED POTASSIUM-SPARING BLOOD PRESSURE PILL [Concomitant]

REACTIONS (2)
  - Dyspepsia [Unknown]
  - Oesophageal pain [Unknown]
